FAERS Safety Report 25835714 (Version 1)
Quarter: 2025Q3

REPORT INFORMATION
  Report Type: Spontaneous
  Country: US (occurrence: US)
  Receive Date: 20250923
  Receipt Date: 20250923
  Transmission Date: 20251020
  Serious: No
  Sender: LEO PHARM
  Company Number: US-LEO Pharma-378216

PATIENT
  Age: 78 Year
  Sex: Female

DRUGS (6)
  1. ADBRY [Suspect]
     Active Substance: TRALOKINUMAB-LDRM
     Indication: Dermatitis atopic
     Route: 058
  2. ADBRY [Suspect]
     Active Substance: TRALOKINUMAB-LDRM
     Indication: Dermatitis atopic
     Route: 058
  3. VENTOLIN HFA [Concomitant]
     Active Substance: ALBUTEROL SULFATE
     Indication: Product used for unknown indication
  4. CETIRIZINE H [Concomitant]
     Indication: Product used for unknown indication
  5. ALBUTEROL SU AER 108 [Concomitant]
     Indication: Product used for unknown indication
  6. TRELEGY ELLI AEP [Concomitant]
     Indication: Product used for unknown indication

REACTIONS (11)
  - Asthma [Unknown]
  - Injection site pain [Unknown]
  - Drug ineffective [Unknown]
  - Sleep disorder [Unknown]
  - Eye disorder [Unknown]
  - Dry skin [Unknown]
  - Skin discolouration [Unknown]
  - Urticaria [Unknown]
  - Burning sensation [Unknown]
  - Skin exfoliation [Unknown]
  - Pain [Unknown]
